FAERS Safety Report 20379398 (Version 1)
Quarter: 2022Q1

REPORT INFORMATION
  Report Type: Report from Study
  Country: IE (occurrence: IE)
  Receive Date: 20220126
  Receipt Date: 20220126
  Transmission Date: 20220424
  Serious: Yes (Hospitalization)
  Sender: FDA-Public Use
  Company Number: IE-AstraZeneca-2021A892862

PATIENT
  Age: 1 Year
  Sex: Female

DRUGS (6)
  1. SYNAGIS [Suspect]
     Active Substance: PALIVIZUMAB
     Indication: Product used for unknown indication
     Dosage: AFTER 28 DAYS
     Route: 030
     Dates: start: 20211119
  2. SYNAGIS [Suspect]
     Active Substance: PALIVIZUMAB
     Indication: Premature baby
     Dosage: AFTER 28 DAYS
     Route: 030
     Dates: start: 20211217
  3. BECTOTIDE [Concomitant]
     Route: 065
  4. VENTOLIN [Concomitant]
     Active Substance: ALBUTEROL SULFATE
     Route: 065
  5. AMOXICILLIN TRIHYDRATE [Concomitant]
     Active Substance: AMOXICILLIN
  6. BECLOMETHASONE DIPROPIONATE [Concomitant]
     Active Substance: BECLOMETHASONE DIPROPIONATE

REACTIONS (3)
  - Lower respiratory tract infection [Unknown]
  - Oxygen saturation abnormal [Unknown]
  - Cough [Unknown]

NARRATIVE: CASE EVENT DATE: 20211218
